FAERS Safety Report 22020883 (Version 1)
Quarter: 2023Q1

REPORT INFORMATION
  Report Type: Spontaneous
  Country: US (occurrence: None)
  Receive Date: 20230217
  Receipt Date: 20230217
  Transmission Date: 20230418
  Serious: Yes (Life-Threatening)
  Sender: FDA-Public Use
  Company Number: None

PATIENT
  Age: 44 Year
  Sex: Male
  Weight: 94.5 kg

DRUGS (1)
  1. SUBOXONE [Suspect]
     Active Substance: BUPRENORPHINE HYDROCHLORIDE\NALOXONE HYDROCHLORIDE
     Indication: Drug dependence
     Dosage: OTHER QUANTITY : 30 SUBLINGUAL;?FREQUENCY : TWICE A DAY;?
     Route: 048
     Dates: start: 20220701, end: 20230217

REACTIONS (3)
  - Dyspnoea [None]
  - Product lot number issue [None]
  - Urinary retention [None]

NARRATIVE: CASE EVENT DATE: 20230217
